FAERS Safety Report 10019552 (Version 1)
Quarter: 2014Q1

REPORT INFORMATION
  Report Type: Spontaneous
  Country: GB (occurrence: GB)
  Receive Date: 20140318
  Receipt Date: 20140318
  Transmission Date: 20141002
  Serious: Yes (Other)
  Sender: FDA-Public Use
  Company Number: GB-WATSON-2014-04843

PATIENT
  Sex: Female

DRUGS (2)
  1. DIAZEPAM [Suspect]
     Indication: CONVULSION
     Dosage: 2 MG, UNK (1-2 MG, INCREASING TO 8MG AT ONE POINT)
     Route: 065
  2. DIAZEPAM [Suspect]
     Dosage: 3 MG, UNK (1-2 MG)
     Route: 065

REACTIONS (3)
  - Convulsion [Recovered/Resolved]
  - Dizziness [Recovered/Resolved]
  - Drug effect decreased [Recovered/Resolved]
